FAERS Safety Report 13524367 (Version 5)
Quarter: 2018Q3

REPORT INFORMATION
  Report Type: Report from Study
  Country: CO (occurrence: CO)
  Receive Date: 20170508
  Receipt Date: 20180831
  Transmission Date: 20181010
  Serious: Yes (Other)
  Sender: FDA-Public Use
  Company Number: PHHY2017CO063668

PATIENT
  Age: 57 Year
  Sex: Female
  Weight: 85 kg

DRUGS (3)
  1. DANAZOL. [Concomitant]
     Active Substance: DANAZOL
     Indication: PRODUCT USED FOR UNKNOWN INDICATION
     Dosage: UNK
     Route: 065
  2. REVOLADE [Suspect]
     Active Substance: ELTROMBOPAG
     Indication: THROMBOCYTOPENIA
  3. REVOLADE [Suspect]
     Active Substance: ELTROMBOPAG
     Indication: IMMUNE THROMBOCYTOPENIC PURPURA
     Dosage: 25 MG, QD
     Route: 048
     Dates: start: 20170321

REACTIONS (10)
  - Suicidal ideation [Unknown]
  - Bundle branch block [Unknown]
  - Haematoma [Unknown]
  - Platelet count decreased [Unknown]
  - Abdominal pain [Unknown]
  - Malaise [Unknown]
  - Depressed mood [Unknown]
  - Ovarian cyst [Unknown]
  - Vision blurred [Unknown]
  - Dizziness [Unknown]

NARRATIVE: CASE EVENT DATE: 20170325
